FAERS Safety Report 5135967-X (Version None)
Quarter: 2006Q4

REPORT INFORMATION
  Report Type: 
  Country: None (occurrence: None)
  Receive Date: 20061020
  Receipt Date: 20061009
  Transmission Date: 20070319
  Serious: Yes (Hospitalization, Other)
  Sender: FDA-Public Use
  Company Number: 2005142159

PATIENT
  Age: 29 Year
  Sex: Female

DRUGS (13)
  1. ALPRAZOLAM [Suspect]
     Indication: ANXIETY
     Dosage: 0.5 MG (0.5  MG, 1 IN 1 D), ORAL
     Route: 048
     Dates: start: 20050801, end: 20060901
  2. ALPRAZOLAM [Suspect]
     Indication: DEPRESSION
     Dosage: 0.5 MG (0.5  MG, 1 IN 1 D), ORAL
     Route: 048
     Dates: start: 20050801, end: 20060901
  3. ALPRAZOLAM [Suspect]
     Indication: ANXIETY
     Dosage: 0.5 MG (0.5  MG, 1 IN 1 D), ORAL
     Route: 048
     Dates: start: 20060101
  4. ALPRAZOLAM [Suspect]
     Indication: DEPRESSION
     Dosage: 0.5 MG (0.5  MG, 1 IN 1 D), ORAL
     Route: 048
     Dates: start: 20060101
  5. DEPAKENE [Suspect]
     Dates: start: 20050101
  6. OMEPRAZOLE [Suspect]
     Indication: GASTRITIS
     Dosage: ORAL
     Route: 048
  7. FLUOXETINE [Suspect]
     Dosage: ORAL
     Route: 048
     Dates: start: 20051007
  8. LEVONORGESTREL [Concomitant]
  9. PAROXETINE [Concomitant]
  10. LEVONORGESTREL W/ETHINYLESTRADIOL (ETHINYLESTRADIOL, LEVONORGESTREL) [Concomitant]
  11. ETHINYL ESTRADIOL TAB [Concomitant]
  12. DEPAKENE [Concomitant]
  13. LUFTAL (DIMETICONE) [Concomitant]

REACTIONS (42)
  - ABNORMAL DREAMS [None]
  - ALCOHOL USE [None]
  - ALOPECIA [None]
  - AMNESIA [None]
  - ANXIETY [None]
  - ARTHRALGIA [None]
  - ASTHENIA [None]
  - BACK PAIN [None]
  - CONDITION AGGRAVATED [None]
  - DEPRESSION [None]
  - DIPLOPIA [None]
  - DISORIENTATION [None]
  - DRUG INEFFECTIVE [None]
  - DRY THROAT [None]
  - DYSURIA [None]
  - ECONOMIC PROBLEM [None]
  - EMOTIONAL DISORDER [None]
  - GASTRITIS [None]
  - HAIR TEXTURE ABNORMAL [None]
  - HYPOKINESIA [None]
  - INCORRECT DOSE ADMINISTERED [None]
  - INSOMNIA [None]
  - IRRITABILITY [None]
  - MUSCLE RIGIDITY [None]
  - MUSCULOSKELETAL PAIN [None]
  - NAIL BED BLEEDING [None]
  - NECK PAIN [None]
  - NERVOUSNESS [None]
  - OEDEMA PERIPHERAL [None]
  - ONYCHOPHAGIA [None]
  - PAIN IN EXTREMITY [None]
  - POISONING [None]
  - POLLAKIURIA [None]
  - SELF-MEDICATION [None]
  - SENSORY DISTURBANCE [None]
  - SLEEP DISORDER [None]
  - SOMNOLENCE [None]
  - SUICIDE ATTEMPT [None]
  - TENSION [None]
  - TREMOR [None]
  - VISION BLURRED [None]
  - WEIGHT INCREASED [None]
